FAERS Safety Report 4272529-0 (Version None)
Quarter: 2004Q1

REPORT INFORMATION
  Report Type: 
  Country: None (occurrence: None)
  Receive Date: 20040114
  Receipt Date: 20040105
  Transmission Date: 20041129
  Serious: Yes (Hospitalization)
  Sender: FDA-Public Use
  Company Number: US-JNJFOC-20040100829

PATIENT
  Age: 19 Year
  Sex: Female
  Weight: 54.4316 kg

DRUGS (3)
  1. ULTRAM [Suspect]
     Indication: PAIN
     Dosage: ORAL
     Route: 048
     Dates: start: 20020101
  2. NAPROXEN [Concomitant]
  3. DIAMOX [Concomitant]

REACTIONS (1)
  - INTRACRANIAL PRESSURE INCREASED [None]
